FAERS Safety Report 18288231 (Version 2)
Quarter: 2020Q4

REPORT INFORMATION
  Report Type: Report from Study
  Country: BR (occurrence: BR)
  Receive Date: 20200921
  Receipt Date: 20201125
  Transmission Date: 20210113
  Serious: Yes (Other)
  Sender: FDA-Public Use
  Company Number: BR-B.I. PHARMACEUTICALS,INC./RIDGEFIELD-2020-BI-048159

PATIENT
  Age: 84 Year
  Sex: Female
  Weight: 63 kg

DRUGS (12)
  1. VALSARTAN. [Concomitant]
     Active Substance: VALSARTAN
     Indication: HYPERTENSION
     Dosage: CONT.
     Route: 048
     Dates: start: 2015
  2. SOMALGIN CARDIO [Concomitant]
     Active Substance: ASPIRIN\DIHYDROXYALUMINUM AMINOACETATE ANHYDROUS\MAGNESIUM CARBONATE
     Indication: CARDIOVASCULAR EVENT PROPHYLAXIS
     Dosage: CONT
     Route: 048
     Dates: start: 20200428
  3. OMEPRAZOLE. [Concomitant]
     Active Substance: OMEPRAZOLE
     Indication: GASTROINTESTINAL DISORDER PROPHYLAXIS
     Route: 048
     Dates: start: 20181205
  4. BISOPROLOL [Concomitant]
     Active Substance: BISOPROLOL
     Indication: CARDIAC FAILURE
     Dosage: CONT
     Route: 048
     Dates: start: 20200428
  5. NIFEDIPIN [Concomitant]
     Active Substance: NIFEDIPINE
     Indication: CARDIAC FAILURE
     Route: 048
     Dates: start: 20200428
  6. CARVEDILOL. [Concomitant]
     Active Substance: CARVEDILOL
     Indication: CARDIAC FAILURE
     Dosage: CONT
     Route: 048
     Dates: start: 20171101
  7. SINVASTATINA [Concomitant]
     Active Substance: SIMVASTATIN
     Indication: CARDIOVASCULAR EVENT PROPHYLAXIS
     Dosage: CONT
     Route: 048
     Dates: start: 20180311
  8. BIOFENAC [DICLOFENAC SODIUM] [Concomitant]
     Indication: OSTEOARTHRITIS
     Dosage: 1 PUFF
     Route: 061
     Dates: start: 20190725
  9. FUROSEMIDE. [Concomitant]
     Active Substance: FUROSEMIDE
     Indication: CARDIAC FAILURE
     Dosage: CONT
     Route: 048
     Dates: start: 20171101
  10. SPIRONOLACTONE. [Concomitant]
     Active Substance: SPIRONOLACTONE
     Indication: CARDIAC FAILURE
     Dosage: CONT
     Route: 065
     Dates: start: 20171101
  11. HYDRALAZINE [Concomitant]
     Active Substance: HYDRALAZINE HYDROCHLORIDE
     Indication: HYPERTENSION
     Dosage: CONT
     Route: 048
     Dates: start: 20200713
  12. EMPAGLIFLOZIN [Suspect]
     Active Substance: EMPAGLIFLOZIN
     Indication: CARDIAC FAILURE
     Route: 048
     Dates: start: 20180405

REACTIONS (1)
  - Renal failure [Not Recovered/Not Resolved]

NARRATIVE: CASE EVENT DATE: 20200904
